FAERS Safety Report 8488200-5 (Version None)
Quarter: 2012Q3

REPORT INFORMATION
  Report Type: 
  Country: None (occurrence: None)
  Receive Date: 20120705
  Receipt Date: 20120626
  Transmission Date: 20120928
  Serious: Yes (Death, Hospitalization, Other)
  Sender: FDA-Public Use
  Company Number: DE-ASTELLAS-2012US005905

PATIENT
  Sex: Female
  Weight: 55 kg

DRUGS (1)
  1. ERLOTINIB HYDROCHLORIDE [Suspect]
     Indication: LUNG NEOPLASM MALIGNANT
     Dosage: 150 MG, UID/QD
     Route: 048
     Dates: start: 20120527, end: 20120619

REACTIONS (6)
  - FATIGUE [None]
  - NEOPLASM PROGRESSION [None]
  - WEIGHT DECREASED [None]
  - INSOMNIA [None]
  - DIARRHOEA [None]
  - PNEUMONIA [None]
